FAERS Safety Report 8375636-6 (Version None)
Quarter: 2012Q2

REPORT INFORMATION
  Report Type: 
  Country: None (occurrence: None)
  Receive Date: 20120522
  Receipt Date: 20120407
  Transmission Date: 20120825
  Serious: No
  Sender: FDA-Public Use
  Company Number: US-PFIZER INC-2012100442

PATIENT
  Sex: Female
  Weight: 68.027 kg

DRUGS (4)
  1. SYNTHROID [Concomitant]
     Indication: HYPOTHYROIDISM
     Dosage: 150 UG, 1X/DAY
  2. NEURONTIN [Suspect]
     Indication: POST HERPETIC NEURALGIA
     Dosage: UNK
     Dates: start: 20120406, end: 20120412
  3. LYRICA [Suspect]
     Dosage: 75 MG, 2X/DAY
     Dates: start: 20120412, end: 20120417
  4. LYRICA [Suspect]
     Indication: POST HERPETIC NEURALGIA
     Dosage: 75 MG, 2X/DAY
     Dates: start: 20120330, end: 20120405

REACTIONS (1)
  - DRUG INEFFECTIVE [None]
